FAERS Safety Report 9709745 (Version 2)
Quarter: 2013Q4

REPORT INFORMATION
  Report Type: Report from Study
  Country: CA (occurrence: CA)
  Receive Date: 20131126
  Receipt Date: 20131126
  Transmission Date: 20140711
  Serious: Yes (Hospitalization)
  Sender: FDA-Public Use
  Company Number: CA-ROCHE-1163860

PATIENT
  Age: 64 Year
  Sex: Male
  Weight: 66.8 kg

DRUGS (27)
  1. OBINUTUZUMAB [Suspect]
     Indication: B-CELL LYMPHOMA
     Dosage: LAST DOSE PRIOR TO SAE: 28 NOV 2012, AT A DOSE OF 100 ML OF 4 MG/ML CONCENTRATION
     Route: 042
     Dates: start: 20121119
  2. BENDAMUSTINE [Suspect]
     Indication: B-CELL LYMPHOMA
     Dosage: LAST DOSE PRIOR TO SAE: 21 NOV 2012, LAST DOSE 163.75 MG
     Route: 042
     Dates: start: 20121120
  3. ALLOPURINOL [Suspect]
     Indication: PROPHYLAXIS
     Route: 065
     Dates: start: 20121113, end: 20121201
  4. STEMETIL [Concomitant]
     Route: 065
     Dates: start: 20121119
  5. KYTRIL [Concomitant]
     Dosage: 2 MG DAILY FOR 3 DAYS WITH EACH CYCLE OF BENDAMUSTINE
     Route: 065
     Dates: start: 20121119
  6. LIPITOR [Concomitant]
     Indication: HYPERCHOLESTEROLAEMIA
  7. NIFEDIPINE [Concomitant]
     Indication: HYPERTENSION
  8. NIFEDIPINE [Concomitant]
     Indication: CORONARY ARTERY BYPASS
  9. RAMIPRIL [Concomitant]
     Indication: HYPERTENSION
     Route: 065
     Dates: end: 20130301
  10. ACETYLSALICYLIC ACID [Concomitant]
     Indication: CORONARY ARTERY BYPASS
  11. DOCUSATE [Concomitant]
     Indication: CONSTIPATION
     Route: 065
     Dates: end: 20130116
  12. SENNA [Concomitant]
     Indication: CONSTIPATION
     Route: 065
     Dates: end: 20130116
  13. LAX-A-DAY [Concomitant]
     Indication: CONSTIPATION
     Route: 065
     Dates: start: 20121101, end: 20121115
  14. LORAZEPAM [Concomitant]
     Indication: ANXIETY
  15. OXYCODONE [Concomitant]
     Indication: ABDOMINAL PAIN
     Route: 065
     Dates: end: 20121219
  16. RESTORALAX [Concomitant]
     Indication: CONSTIPATION
     Route: 065
     Dates: end: 20130116
  17. GLYCERIN SUPPOSITORY [Concomitant]
     Indication: CONSTIPATION
     Route: 065
     Dates: end: 20130116
  18. PREDNISONE [Concomitant]
     Route: 065
     Dates: start: 20121119, end: 20121128
  19. BENADRYL (CANADA) [Concomitant]
     Route: 065
     Dates: start: 20121119
  20. TYLENOL #4 [Concomitant]
     Route: 065
     Dates: start: 20121119
  21. DEMEROL [Concomitant]
     Indication: CHILLS
     Route: 065
     Dates: start: 20121119, end: 20121119
  22. TYLENOL [Concomitant]
     Indication: PYREXIA
     Route: 065
     Dates: start: 20121119, end: 20121119
  23. GRAVOL [Concomitant]
     Indication: NAUSEA
     Route: 065
     Dates: start: 20121119, end: 20121119
  24. GRAVOL [Concomitant]
     Route: 065
     Dates: start: 20121126, end: 20121126
  25. MORPHINE [Concomitant]
     Indication: PROCTALGIA
     Route: 065
     Dates: start: 20121126, end: 20121126
  26. METFORMIN [Concomitant]
     Indication: DIABETES MELLITUS
     Route: 065
     Dates: start: 20121201
  27. LACTULOSE [Concomitant]
     Route: 065
     Dates: start: 20130116

REACTIONS (2)
  - Rash maculo-papular [Recovered/Resolved]
  - Pyrexia [Recovered/Resolved]
